FAERS Safety Report 9082457 (Version 1)
Quarter: 2013Q1

REPORT INFORMATION
  Report Type: Report from Study
  Country: US (occurrence: US)
  Receive Date: 20130130
  Receipt Date: 20130130
  Transmission Date: 20140127
  Serious: No
  Sender: FDA-Public Use
  Company Number: US-ABBOTT-12P-163-0971229-00

PATIENT
  Sex: Female
  Weight: 59.93 kg

DRUGS (8)
  1. HUMIRA 40 MG/0.8 ML PEN [Suspect]
     Indication: ANKYLOSING SPONDYLITIS
     Dates: start: 20120805
  2. ASACOL [Concomitant]
     Indication: COLITIS
  3. FIBERCON [Concomitant]
     Indication: CONSTIPATION
  4. MIRALAX [Concomitant]
     Indication: CONSTIPATION
  5. NASONEX [Concomitant]
     Indication: HYPERSENSITIVITY
  6. OMEPRAZOLE [Concomitant]
     Indication: ILL-DEFINED DISORDER
  7. TRAMADOL [Concomitant]
     Indication: PAIN
  8. PREDNISONE [Concomitant]
     Indication: ANKYLOSING SPONDYLITIS

REACTIONS (4)
  - Influenza like illness [Recovered/Resolved]
  - Headache [Not Recovered/Not Resolved]
  - Nausea [Recovered/Resolved]
  - Injection site erythema [Recovered/Resolved]
